FAERS Safety Report 4826386-1 (Version None)
Quarter: 2005Q4

REPORT INFORMATION
  Report Type: 
  Country: None (occurrence: None)
  Receive Date: 20051111
  Receipt Date: 20050808
  Transmission Date: 20060501
  Serious: Yes (Death, Other)
  Sender: FDA-Public Use
  Company Number: 200512571EU

PATIENT
  Age: 75 Year
  Sex: Female

DRUGS (8)
  1. FRUSEMIDE [Suspect]
     Indication: DRUG USE FOR UNKNOWN INDICATION
  2. LISINOPRIL [Suspect]
     Indication: HYPERTENSION
  3. ZOTON [Suspect]
     Indication: DRUG USE FOR UNKNOWN INDICATION
     Dosage: DOSE: UNK
  4. ASPIRIN [Suspect]
     Indication: DRUG USE FOR UNKNOWN INDICATION
     Dosage: DOSE: UNK
  5. ATENOLOL [Suspect]
     Indication: DRUG USE FOR UNKNOWN INDICATION
     Dosage: DOSE: UNK
  6. GLYCERYL TRINITRATE [Suspect]
     Indication: DRUG USE FOR UNKNOWN INDICATION
     Dosage: DOSE: UNK
  7. ATORVASTATIN CALCIUM [Suspect]
     Indication: DRUG USE FOR UNKNOWN INDICATION
     Dosage: DOSE: UNK
  8. NITROGLYCERIN [Concomitant]
     Indication: DRUG USE FOR UNKNOWN INDICATION

REACTIONS (10)
  - ACUTE MYOCARDIAL INFARCTION [None]
  - COLON CANCER [None]
  - GASTROINTESTINAL HAEMORRHAGE [None]
  - LARYNGEAL OEDEMA [None]
  - LARYNGOSPASM [None]
  - LOWER RESPIRATORY TRACT INFECTION [None]
  - OBSTRUCTIVE AIRWAYS DISORDER [None]
  - OVERDOSE [None]
  - PULMONARY OEDEMA [None]
  - STRIDOR [None]
